FAERS Safety Report 7510354-5 (Version None)
Quarter: 2011Q2

REPORT INFORMATION
  Report Type: 
  Country: None (occurrence: None)
  Receive Date: 20110527
  Receipt Date: 20110516
  Transmission Date: 20111010
  Serious: Yes (Death, Other)
  Sender: FDA-Public Use
  Company Number: NL-WATSON-2011-06816

PATIENT
  Age: 23 Year
  Sex: Male

DRUGS (5)
  1. ACYCLOVIR [Suspect]
     Indication: HERPES ZOSTER
     Route: 042
  2. VALACYCLOVIR HYDROCHLORIDE [Suspect]
     Indication: HERPES ZOSTER
     Dosage: UNK
     Route: 042
  3. VALGANCICLOVIR [Suspect]
     Indication: CYTOMEGALOVIRUS CHORIORETINITIS
     Dosage: UNK
  4. GANCICLOVIR [Suspect]
     Indication: CYTOMEGALOVIRUS CHORIORETINITIS
     Dosage: UNK
  5. CIDOFOVIR [Suspect]
     Indication: DIARRHOEA
     Dosage: UNK

REACTIONS (3)
  - GENE MUTATION [None]
  - PNEUMONIA BACTERIAL [None]
  - DRUG INEFFECTIVE [None]
